FAERS Safety Report 8603307-7 (Version None)
Quarter: 2012Q3

REPORT INFORMATION
  Report Type: 
  Country: None (occurrence: None)
  Receive Date: 20120817
  Receipt Date: 20120813
  Transmission Date: 20120928
  Serious: Yes (Death, Hospitalization, Other)
  Sender: FDA-Public Use
  Company Number: PHHY2012BR070284

PATIENT
  Sex: Male

DRUGS (1)
  1. FORMOTEROL FUMARATE [Suspect]
     Indication: DYSPNOEA
     Dosage: 2 DF, DAILY

REACTIONS (5)
  - DYSPNOEA [None]
  - NEOPLASM [None]
  - RESPIRATORY FAILURE [None]
  - PAIN [None]
  - METASTASES TO CENTRAL NERVOUS SYSTEM [None]
